FAERS Safety Report 10236875 (Version 1)
Quarter: 2014Q2

REPORT INFORMATION
  Report Type: Spontaneous
  Country: FR (occurrence: FR)
  Receive Date: 20140613
  Receipt Date: 20140613
  Transmission Date: 20141212
  Serious: Yes (Hospitalization)
  Sender: FDA-Public Use
  Company Number: FR-PFIZER INC-2014162832

PATIENT
  Age: 60 Year
  Sex: Male

DRUGS (3)
  1. INIPOMP [Suspect]
     Dosage: 20 MG, UNK
     Route: 048
  2. PRADAXA [Interacting]
     Indication: THROMBOSIS PROPHYLAXIS
     Dosage: 300 MG, 1X/DAY
     Route: 048
     Dates: start: 201311, end: 20140130
  3. KERLONE [Concomitant]

REACTIONS (2)
  - Drug interaction [Recovering/Resolving]
  - Peripheral artery thrombosis [Recovering/Resolving]
